FAERS Safety Report 5074375-7 (Version None)
Quarter: 2006Q3

REPORT INFORMATION
  Report Type: 
  Country: None (occurrence: None)
  Receive Date: 20060714
  Receipt Date: 20060331
  Transmission Date: 20061208
  Serious: No
  Sender: FDA-Public Use
  Company Number: 2006SP000248

PATIENT
  Age: 87 Year
  Sex: Female
  Weight: 59.8748 kg

DRUGS (6)
  1. LUNESTA [Suspect]
     Indication: INSOMNIA
     Dosage: 3 MG; HS; ORAL
     Route: 048
  2. TRAZODONE HCL [Concomitant]
  3. AMLODIPINE BESYLATE [Concomitant]
  4. BENICAR [Concomitant]
  5. MULTIVITAMIN [Concomitant]
  6. ASPIRIN [Concomitant]

REACTIONS (2)
  - DRUG INEFFECTIVE [None]
  - INSOMNIA [None]
